FAERS Safety Report 23260860 (Version 1)
Quarter: 2023Q4

REPORT INFORMATION
  Report Type: Spontaneous
  Country: US (occurrence: US)
  Receive Date: 20231205
  Receipt Date: 20231205
  Transmission Date: 20240109
  Serious: No
  Sender: FDA-Public Use
  Company Number: US-CELLTRION INC.-2023US001935

PATIENT

DRUGS (5)
  1. RITUXIMAB [Suspect]
     Active Substance: RITUXIMAB
     Indication: Lymphoproliferative disorder
     Dosage: 375 MG/M2, FOUR WEEKLY TREATMENTS
  2. METHOTREXATE [Suspect]
     Active Substance: METHOTREXATE
     Indication: Lymphoproliferative disorder
     Dosage: HD-MTX 1 G/M2
  3. METHOTREXATE [Suspect]
     Active Substance: METHOTREXATE
     Dosage: HD-MTX 2 G/M2, EVERY 2 WEEKS
  4. METHOTREXATE [Suspect]
     Active Substance: METHOTREXATE
     Dosage: HD-MTX 2 G/M2, EVERY FOUR WEEKS
  5. PREDNISONE [Concomitant]
     Active Substance: PREDNISONE
     Dosage: 15 MILLIGRAM, DAILY

REACTIONS (1)
  - Therapy non-responder [Unknown]
